FAERS Safety Report 23479229 (Version 2)
Quarter: 2024Q1

REPORT INFORMATION
  Report Type: Report from Study
  Country: US (occurrence: US)
  Receive Date: 20240205
  Receipt Date: 20240318
  Transmission Date: 20240409
  Serious: Yes (Death, Other)
  Sender: FDA-Public Use
  Company Number: US-ACADIA PHARMACEUTICALS INC.-ACA-2024-PIM-000138

PATIENT
  Age: 80 Year
  Sex: Male

DRUGS (12)
  1. NUPLAZID [Suspect]
     Active Substance: PIMAVANSERIN TARTRATE
     Indication: Parkinson^s disease psychosis
     Dosage: 34 MILLIGRAM, QD
     Route: 048
     Dates: start: 202310
  2. NUPLAZID [Suspect]
     Active Substance: PIMAVANSERIN TARTRATE
     Indication: Parkinson^s disease
  3. ATORVASTATIN [Concomitant]
     Active Substance: ATORVASTATIN
  4. TAMSULOSIN [Concomitant]
     Active Substance: TAMSULOSIN
  5. SEROQUEL [Concomitant]
     Active Substance: QUETIAPINE FUMARATE
  6. METOPROLOL [Concomitant]
     Active Substance: METOPROLOL
  7. AMANTADINE [Concomitant]
     Active Substance: AMANTADINE
  8. ASPIRIN [Concomitant]
     Active Substance: ASPIRIN
  9. CLONAZEPAM [Concomitant]
     Active Substance: CLONAZEPAM
  10. RYTARY [Concomitant]
     Active Substance: CARBIDOPA\LEVODOPA
  11. RASAGILINE [Concomitant]
     Active Substance: RASAGILINE\RASAGILINE MESYLATE
  12. DESVENLAFAXINE [Concomitant]
     Active Substance: DESVENLAFAXINE

REACTIONS (4)
  - Death [Recovered/Resolved]
  - Drug interaction [Unknown]
  - Condition aggravated [Unknown]
  - Mental disorder [Unknown]

NARRATIVE: CASE EVENT DATE: 20240225
